FAERS Safety Report 4396832-9 (Version None)
Quarter: 2004Q3

REPORT INFORMATION
  Report Type: 
  Country: None (occurrence: None)
  Receive Date: 20040708
  Receipt Date: 20040705
  Transmission Date: 20050211
  Serious: Yes (Hospitalization)
  Sender: FDA-Public Use
  Company Number: MAG-2004-0000273

PATIENT
  Age: 66 Year
  Sex: Male

DRUGS (6)
  1. THEOPHYLLINE [Suspect]
     Indication: CHRONIC OBSTRUCTIVE AIRWAYS DISEASE
     Dosage: 200 MG, DAILY, ORAL
     Route: 048
     Dates: start: 20030701
  2. AMLODIPINE BESYLATE [Concomitant]
  3. CLARITHROMYCIN [Concomitant]
  4. TULOBUTEROL (TULOUBUTEROL) [Concomitant]
  5. LAFUTIDINE [Concomitant]
  6. HOCHUUEKKITOU (HERBAL EXTRACTS NOS) [Concomitant]

REACTIONS (6)
  - ANAEMIA [None]
  - BASOPHIL COUNT INCREASED [None]
  - CONDITION AGGRAVATED [None]
  - DYSPNOEA [None]
  - EOSINOPHIL COUNT INCREASED [None]
  - PALPITATIONS [None]
